FAERS Safety Report 6554915-9 (Version None)
Quarter: 2010Q1

REPORT INFORMATION
  Report Type: 
  Country: None (occurrence: None)
  Receive Date: 20100126
  Receipt Date: 20100113
  Transmission Date: 20100710
  Serious: Yes (Hospitalization)
  Sender: FDA-Public Use
  Company Number: 1000011407

PATIENT
  Age: 26 Year
  Sex: Female
  Weight: 55 kg

DRUGS (2)
  1. ESCITALOPRAM [Suspect]
     Dosage: 20 MG (20 MG, 1 IN 1 D), ORAL
     Route: 048
  2. MARIJUANA [Concomitant]

REACTIONS (4)
  - ABASIA [None]
  - EXTRAPYRAMIDAL DISORDER [None]
  - HYPOTONIA [None]
  - MUSCLE SPASMS [None]
